FAERS Safety Report 16406242 (Version 1)
Quarter: 2019Q2

REPORT INFORMATION
  Report Type: Spontaneous
  Country: US (occurrence: US)
  Receive Date: 20190607
  Receipt Date: 20190607
  Transmission Date: 20190711
  Serious: Yes (Hospitalization)
  Sender: FDA-Public Use
  Company Number: US-ALLERGAN-1850407US

PATIENT
  Sex: Female

DRUGS (1)
  1. VIBERZI [Suspect]
     Active Substance: ELUXADOLINE
     Indication: ABDOMINAL PAIN
     Dosage: 75 MG, BID
     Route: 048

REACTIONS (8)
  - Pancreatitis acute [Recovering/Resolving]
  - Transaminases increased [Recovered/Resolved]
  - Leukocytosis [Recovered/Resolved]
  - Off label use [Unknown]
  - Nausea [Recovered/Resolved]
  - Abdominal pain [Recovering/Resolving]
  - Hypokalaemia [Recovered/Resolved]
  - Vomiting [Recovered/Resolved]
